FAERS Safety Report 17429050 (Version 2)
Quarter: 2020Q4

REPORT INFORMATION
  Report Type: Report from Study
  Country: GB (occurrence: GB)
  Receive Date: 20200217
  Receipt Date: 20201126
  Transmission Date: 20210113
  Serious: Yes (Hospitalization, Other)
  Sender: FDA-Public Use
  Company Number: GB-SAMSUNG BIOEPIS-SB-2020-04640

PATIENT
  Age: 73 Year
  Sex: Female
  Weight: 61 kg

DRUGS (1)
  1. BENEPALI [Suspect]
     Active Substance: ETANERCEPT
     Indication: RHEUMATOID ARTHRITIS
     Dosage: UNKNOWN
     Route: 058
     Dates: start: 20170309, end: 20180518

REACTIONS (4)
  - Joint effusion [Unknown]
  - Arthritis infective [Unknown]
  - Femoral neck fracture [Unknown]
  - Removal of internal fixation [Unknown]

NARRATIVE: CASE EVENT DATE: 20170316
